FAERS Safety Report 4326234-2 (Version None)
Quarter: 2004Q1

REPORT INFORMATION
  Report Type: 
  Country: None (occurrence: None)
  Receive Date: 20040324
  Receipt Date: 20031216
  Transmission Date: 20041129
  Serious: Yes (Hospitalization)
  Sender: FDA-Public Use
  Company Number: BE 2003 0008

PATIENT
  Age: 44 Year
  Sex: Female

DRUGS (1)
  1. DOTAREN  (MEGLUMINE GADOTERATE) [Suspect]
     Indication: NUCLEAR MAGNETIC RESONANCE IMAGING BRAIN
     Dosage: INTRAVENOUS
     Route: 042
     Dates: start: 20030912, end: 20030912

REACTIONS (7)
  - CONJUNCTIVAL OEDEMA [None]
  - DYSPNOEA [None]
  - EYE OEDEMA [None]
  - PERIORBITAL OEDEMA [None]
  - RASH [None]
  - TACHYCARDIA [None]
  - URTICARIA [None]
